FAERS Safety Report 11252904 (Version 2)
Quarter: 2017Q1

REPORT INFORMATION
  Report Type: Spontaneous
  Country: US (occurrence: US)
  Receive Date: 20150708
  Receipt Date: 20170103
  Transmission Date: 20170428
  Serious: Yes (Death, Life-Threatening, Hospitalization, Other)
  Sender: FDA-Public Use
  Company Number: US-SUCAMPO PHARMA AMERICAS, LLC-SPI201500622

PATIENT
  Age: 78 Year
  Sex: Male

DRUGS (30)
  1. AMITIZA [Suspect]
     Active Substance: LUBIPROSTONE
     Dosage: 8 MCG, BID
     Route: 048
     Dates: start: 201502, end: 20150624
  2. BENADRYL [Concomitant]
     Active Substance: DIPHENHYDRAMINE HYDROCHLORIDE
     Indication: RHINORRHOEA
     Dosage: 25 MG, PRN 4X PER DAY
     Dates: start: 20141205
  3. GABAPENTIN. [Concomitant]
     Active Substance: GABAPENTIN
     Indication: NEUROPATHY PERIPHERAL
     Dosage: 300 MG, QD
     Dates: start: 2008
  4. AMITIZA [Suspect]
     Active Substance: LUBIPROSTONE
     Indication: CONSTIPATION
     Dosage: 24 MCG, BID
     Route: 048
     Dates: start: 20150205, end: 201502
  5. VICODIN [Concomitant]
     Active Substance: ACETAMINOPHEN\HYDROCODONE BITARTRATE
     Indication: PAIN
     Dosage: 5/300 1 OR 2 EVERY 6-8 HOURS
     Dates: start: 2004
  6. DIGOXIN. [Concomitant]
     Active Substance: DIGOXIN
     Indication: CARDIAC DISORDER
     Dosage: 0.125 EVERY 48 HOURS
     Dates: start: 1992
  7. LANTUS [Concomitant]
     Active Substance: INSULIN GLARGINE
     Indication: DIABETES MELLITUS
     Dosage: SLIDING SCALE DAILY
     Dates: start: 1992
  8. SERTRALINE [Concomitant]
     Active Substance: SERTRALINE HYDROCHLORIDE
     Indication: DEPRESSION
     Dosage: 100 MG, QD
     Dates: start: 1997
  9. XANAX [Concomitant]
     Active Substance: ALPRAZOLAM
     Indication: ANXIETY
     Dosage: 0.25MG UP TO 3 TIMES A DAY
     Dates: start: 20150212
  10. LISINOPRIL. [Concomitant]
     Active Substance: LISINOPRIL
     Indication: BLOOD PRESSURE MEASUREMENT
     Dosage: 1.25 MG, QD IF SYS BP 100 OR HIGHER
     Dates: start: 1992
  11. MIRALAX [Concomitant]
     Active Substance: POLYETHYLENE GLYCOL 3350
     Indication: CONSTIPATION
     Dosage: 17G QD PRN
     Dates: start: 20150205
  12. SOTALOL. [Concomitant]
     Active Substance: SOTALOL
     Indication: ARRHYTHMIA
     Dosage: 40 MG, TID
     Dates: start: 1992
  13. SYNTHROID [Concomitant]
     Active Substance: LEVOTHYROXINE SODIUM
     Indication: BLOOD THYROID STIMULATING HORMONE DECREASED
     Dosage: 50 MCG, QD
     Dates: start: 20141213
  14. AYR SALINE NASAL GEL [Concomitant]
     Indication: NASAL DRYNESS
     Dosage: 1 DF, BID
     Dates: start: 20150529
  15. ELIQUIS [Concomitant]
     Active Substance: APIXABAN
     Indication: ATRIAL FIBRILLATION
     Dosage: 5 MG, BID
     Dates: start: 20150514
  16. NASACORT [Concomitant]
     Active Substance: TRIAMCINOLONE ACETONIDE
     Indication: HYPERSENSITIVITY
     Dosage: 1-2 SPRAYS EA, 1-2 TIMES A DAY
     Dates: start: 20141204
  17. PANTOPRAZOLE [Concomitant]
     Active Substance: PANTOPRAZOLE SODIUM
     Indication: GASTRIC PH DECREASED
     Dosage: 20MG DAILY PRN
     Dates: start: 20140930, end: 20150508
  18. TEMAZEPAM. [Concomitant]
     Active Substance: TEMAZEPAM
     Indication: INSOMNIA
     Dosage: 30 MG, QD
     Dates: start: 2002
  19. VITAMIN D3 [Concomitant]
     Active Substance: CHOLECALCIFEROL
     Indication: VITAMIN D DECREASED
     Dosage: 2000 IU, UNK
     Dates: start: 2008
  20. AMIODARONE [Concomitant]
     Active Substance: AMIODARONE
  21. ASPIRIN. [Concomitant]
     Active Substance: ASPIRIN
     Indication: PROPHYLAXIS
     Dosage: 81 MG, QD
     Dates: start: 1990
  22. LIPITOR [Concomitant]
     Active Substance: ATORVASTATIN CALCIUM
     Indication: BLOOD CHOLESTEROL INCREASED
     Dosage: 10 MG, QD
     Dates: start: 20150529
  23. MELATONIN [Concomitant]
     Active Substance: MELATONIN
     Indication: INITIAL INSOMNIA
     Dosage: 3 MG, QD
     Dates: start: 2013
  24. NOVOLOG [Concomitant]
     Active Substance: INSULIN ASPART
     Indication: DIABETES MELLITUS
     Dosage: SLIDING SCALE 3 TIMES A DAY
     Dates: start: 1992
  25. POTASSIUM CHLORIDE. [Concomitant]
     Active Substance: POTASSIUM CHLORIDE
     Indication: SUPPLEMENTATION THERAPY
     Dosage: 10 MEQ, DAILY OR AS DIRECTED
     Dates: start: 2004, end: 20150530
  26. SPIRONOLACTONE. [Concomitant]
     Active Substance: SPIRONOLACTONE
     Indication: FLUID OVERLOAD
     Dosage: 12.5 MG, QD
     Dates: start: 20150522
  27. ALLOPURINOL. [Concomitant]
     Active Substance: ALLOPURINOL
     Indication: GOUT
     Dosage: 100 MG, QD
     Dates: start: 2013
  28. GLUCERNA [Concomitant]
     Active Substance: AMINO ACIDS\DEXTROSE\ELECTROLYTES NOS\SOYBEAN OIL\VITAMINS
     Indication: MUSCLE ATROPHY
     Dosage: 8 OZ 3 TIMES A DAY
     Dates: start: 2008
  29. SANTYL COLLANGENASE OINTMENT [Concomitant]
     Indication: DIABETIC ULCER
     Dosage: 250 UNITS/G DAILY
     Dates: start: 20150529
  30. TYLENOL [Concomitant]
     Active Substance: ACETAMINOPHEN
     Indication: ARTHRITIS
     Dosage: 650MG TID AND AS DIRECTED
     Dates: start: 20141213

REACTIONS (18)
  - Endocarditis bacterial [Fatal]
  - Ischaemic cardiomyopathy [None]
  - Cardiac failure congestive [Unknown]
  - Pseudomonas infection [Unknown]
  - Painful respiration [Unknown]
  - Pain [Recovered/Resolved]
  - Arteriosclerosis [None]
  - Atrial flutter [Unknown]
  - Staphylococcal infection [Unknown]
  - Pleural effusion [Unknown]
  - Respiratory rate increased [Unknown]
  - Muscle spasms [Recovered/Resolved]
  - Headache [Unknown]
  - Circulatory collapse [Unknown]
  - Pneumococcal sepsis [Unknown]
  - Endocarditis [Unknown]
  - Movement disorder [Unknown]
  - Cerebrovascular accident [Unknown]

NARRATIVE: CASE EVENT DATE: 201502
